FAERS Safety Report 6532186-7 (Version None)
Quarter: 2010Q1

REPORT INFORMATION
  Report Type: 
  Country: None (occurrence: None)
  Receive Date: 20100107
  Receipt Date: 20100107
  Transmission Date: 20100710
  Serious: Yes (Hospitalization)
  Sender: FDA-Public Use
  Company Number: None

PATIENT
  Age: 35 Year
  Sex: Female
  Weight: 75 kg

DRUGS (2)
  1. CUBICIN [Suspect]
     Indication: OSTEOMYELITIS
     Dosage: 600MG Q24H IV
     Route: 042
     Dates: start: 20091221, end: 20100104
  2. CUBICIN [Suspect]
     Indication: STAPHYLOCOCCAL INFECTION
     Dosage: 600MG Q24H IV
     Route: 042
     Dates: start: 20091221, end: 20100104

REACTIONS (1)
  - BLOOD CREATINE PHOSPHOKINASE INCREASED [None]
